FAERS Safety Report 9838866 (Version 1)
Quarter: 2014Q1

REPORT INFORMATION
  Report Type: Spontaneous
  Country: NO (occurrence: NO)
  Receive Date: 20140123
  Receipt Date: 20140123
  Transmission Date: 20141002
  Serious: Yes (Death)
  Sender: FDA-Public Use
  Company Number: NO-B.I. PHARMACEUTICALS,INC./RIDGEFIELD-2014-BI-02720NO

PATIENT
  Age: 69 Year
  Sex: Male
  Weight: 50 kg

DRUGS (7)
  1. PRADAXA [Suspect]
     Indication: ATRIAL FIBRILLATION
     Dosage: 300 MG
     Route: 048
     Dates: start: 20131017
  2. IBUX [Suspect]
     Indication: BACK PAIN
     Dosage: 1200 MG
     Route: 048
  3. PREDNISOLON [Suspect]
     Indication: NEUROPATHY PERIPHERAL
     Dosage: 20 MG
     Route: 048
  4. / CALCIUM COMPOUNDS [Concomitant]
     Dosage: 1000 MG
     Route: 048
  5. BAKLOFEN MYLAN / BACLOFEN [Concomitant]
     Indication: MUSCLE SPASMS
     Dosage: 20 MG
  6. LAMICTAL / LAMOTRIGINE [Concomitant]
     Indication: NEUROPATHY PERIPHERAL
     Dosage: 200 MG
     Route: 048
  7. / ENALAPRIL [Concomitant]
     Indication: CARDIAC FAILURE
     Dosage: 5 MG

REACTIONS (3)
  - Gastrointestinal haemorrhage [Fatal]
  - Haematoma [Fatal]
  - Melaena [Fatal]
